FAERS Safety Report 16776055 (Version 1)
Quarter: 2019Q3

REPORT INFORMATION
  Report Type: Spontaneous
  Country: SG (occurrence: SG)
  Receive Date: 20190905
  Receipt Date: 20190905
  Transmission Date: 20191005
  Serious: Yes (Other)
  Sender: FDA-Public Use
  Company Number: SG-JNJFOC-20190834464

PATIENT
  Age: 59 Year
  Sex: Male

DRUGS (10)
  1. ETOPOSIDE. [Suspect]
     Active Substance: ETOPOSIDE
     Route: 065
     Dates: start: 20181018, end: 20181110
  2. RITUXIMAB. [Suspect]
     Active Substance: RITUXIMAB
     Route: 065
     Dates: start: 20181018, end: 20181110
  3. ETOPOSIDE. [Suspect]
     Active Substance: ETOPOSIDE
     Indication: DOUBLE HIT LYMPHOMA
     Route: 065
     Dates: start: 20180601, end: 20180824
  4. PREDNISOLONE. [Suspect]
     Active Substance: PREDNISOLONE
     Indication: DOUBLE HIT LYMPHOMA
     Route: 065
     Dates: start: 20180601, end: 20180824
  5. VINCRISTINE [Suspect]
     Active Substance: VINCRISTINE
     Indication: DOUBLE HIT LYMPHOMA
     Route: 065
     Dates: start: 20180601, end: 20180824
  6. CYCLOPHOSPHAMIDE. [Suspect]
     Active Substance: CYCLOPHOSPHAMIDE
     Indication: DOUBLE HIT LYMPHOMA
     Route: 065
     Dates: start: 20180601, end: 20180824
  7. DOXORUBICIN HYDROCHLORIDE. [Suspect]
     Active Substance: DOXORUBICIN HYDROCHLORIDE
     Indication: DOUBLE HIT LYMPHOMA
     Route: 065
     Dates: start: 20180601, end: 20180824
  8. RITUXIMAB. [Suspect]
     Active Substance: RITUXIMAB
     Indication: DOUBLE HIT LYMPHOMA
     Route: 065
     Dates: start: 20180601, end: 20180824
  9. CARBOPLATIN. [Suspect]
     Active Substance: CARBOPLATIN
     Indication: DOUBLE HIT LYMPHOMA
     Dates: start: 20181018, end: 20181110
  10. IFOSFAMIDE. [Suspect]
     Active Substance: IFOSFAMIDE
     Indication: DOUBLE HIT LYMPHOMA
     Dates: start: 20181018, end: 20181110

REACTIONS (4)
  - Double hit lymphoma [Unknown]
  - Peripheral sensory neuropathy [Not Recovered/Not Resolved]
  - Off label use [Unknown]
  - Product use in unapproved indication [Unknown]

NARRATIVE: CASE EVENT DATE: 20180601
